FAERS Safety Report 4360417-0 (Version None)
Quarter: 2004Q2

REPORT INFORMATION
  Report Type: 
  Country: None (occurrence: None)
  Receive Date: 20040514
  Receipt Date: 20040505
  Transmission Date: 20050107
  Serious: Yes (Other)
  Sender: FDA-Public Use
  Company Number: 2004030577

PATIENT
  Sex: Female
  Weight: 49.8957 kg

DRUGS (3)
  1. NEURONTIN [Suspect]
     Indication: PAIN
     Dosage: 4800 MG (1600 MG, THREE TIMES A DAY), ORAL
     Route: 048
     Dates: start: 20010101
  2. TOLTERODINE L-TARTRATE (TOLTERODINE L-TARTRATE) [Concomitant]
  3. BACTRIM [Concomitant]

REACTIONS (4)
  - BLINDNESS TRANSIENT [None]
  - SOMNOLENCE [None]
  - TINNITUS [None]
  - VISUAL DISTURBANCE [None]
